FAERS Safety Report 25357580 (Version 1)
Quarter: 2025Q2

REPORT INFORMATION
  Report Type: Spontaneous
  Country: US (occurrence: US)
  Receive Date: 20250526
  Receipt Date: 20250526
  Transmission Date: 20250717
  Serious: No
  Sender: CSL BEHRING
  Company Number: US-BEH-2025203186

PATIENT
  Age: 42 Year
  Sex: Male
  Weight: 82.54 kg

DRUGS (1)
  1. VELTASSA [Suspect]
     Active Substance: PATIROMER
     Indication: Hyperkalaemia
     Dosage: 8.4 G, TIW
     Route: 065
     Dates: end: 2025

REACTIONS (2)
  - Diarrhoea [Unknown]
  - Off label use [Unknown]
